FAERS Safety Report 6434683-1 (Version None)
Quarter: 2009Q4

REPORT INFORMATION
  Report Type: 
  Country: None (occurrence: None)
  Receive Date: 20091110
  Receipt Date: 20091029
  Transmission Date: 20100525
  Serious: Yes (Hospitalization)
  Sender: FDA-Public Use
  Company Number: FR-GILEAD-2009-0025116

PATIENT
  Sex: Male

DRUGS (6)
  1. TRUVADA [Suspect]
     Indication: HIV INFECTION
     Dates: start: 20070101
  2. KALETRA [Suspect]
     Indication: HIV INFECTION
     Dates: start: 20070101
  3. COPEGUS [Suspect]
     Dates: start: 20090220
  4. COPEGUS [Suspect]
     Dates: start: 20090601
  5. AVLOCARDYL [Suspect]
     Dates: start: 20090209, end: 20090901
  6. FACTANE [Concomitant]

REACTIONS (1)
  - PORPHYRIA NON-ACUTE [None]
